FAERS Safety Report 13328313 (Version 1)
Quarter: 2017Q1

REPORT INFORMATION
  Report Type: Spontaneous
  Country: US (occurrence: US)
  Receive Date: 20170310
  Receipt Date: 20170310
  Transmission Date: 20170428
  Serious: Yes (Other)
  Sender: FDA-Public Use
  Company Number: None

PATIENT
  Age: 57 Year
  Sex: Female
  Weight: 85.5 kg

DRUGS (15)
  1. BUSPIRONE 15 MG [Suspect]
     Active Substance: BUSPIRONE HYDROCHLORIDE
     Indication: BIPOLAR DISORDER
     Route: 048
     Dates: start: 20160101, end: 20170310
  2. BUSPIRONE 15 MG [Suspect]
     Active Substance: BUSPIRONE HYDROCHLORIDE
     Indication: ANXIETY
     Route: 048
     Dates: start: 20160101, end: 20170310
  3. ENSAM [Concomitant]
  4. AMBIEN 10MG GENERIC [Suspect]
     Active Substance: ZOLPIDEM TARTRATE
     Dates: start: 20170101, end: 20170310
  5. RELPAY [Concomitant]
  6. BUSPIRONE 15 MG [Suspect]
     Active Substance: BUSPIRONE HYDROCHLORIDE
     Indication: DEPRESSION
     Route: 048
     Dates: start: 20160101, end: 20170310
  7. SEROQUEL100MG GENERIC [Suspect]
     Active Substance: QUETIAPINE FUMARATE
     Dates: start: 20170101, end: 20170310
  8. MELOXICAM. [Concomitant]
     Active Substance: MELOXICAM
  9. PROPRANOLOL ER [Concomitant]
  10. TIXANIDINE [Concomitant]
  11. BUSPIRONE 15 MG [Suspect]
     Active Substance: BUSPIRONE HYDROCHLORIDE
     Indication: MIGRAINE
     Route: 048
     Dates: start: 20160101, end: 20170310
  12. LAMOTRIGINE 100MG [Suspect]
     Active Substance: LAMOTRIGINE
     Dates: start: 20170101, end: 20170310
  13. TOPIRAMATE. [Suspect]
     Active Substance: TOPIRAMATE
     Dates: start: 20170101, end: 20170310
  14. EXCEDRIN [Concomitant]
     Active Substance: ACETAMINOPHEN\ASPIRIN\CAFFEINE
  15. ADVIL [Concomitant]
     Active Substance: IBUPROFEN

REACTIONS (3)
  - Product quality issue [None]
  - Mental disorder [None]
  - Drug ineffective [None]

NARRATIVE: CASE EVENT DATE: 20170102
